FAERS Safety Report 5626660-5 (Version None)
Quarter: 2008Q1

REPORT INFORMATION
  Report Type: 
  Country: None (occurrence: None)
  Receive Date: 20080214
  Receipt Date: 20080123
  Transmission Date: 20080703
  Serious: No
  Sender: FDA-Public Use
  Company Number: US-BOEHRINGER INGELHEIM GMBH, GERMANY-2008-BP-01113BP

PATIENT
  Age: 78 Year
  Sex: Male
  Weight: 92 kg

DRUGS (5)
  1. FLOMAX [Suspect]
  2. SIMVASTATIN [Concomitant]
  3. HYTRIN [Concomitant]
  4. LISINOPRIL [Concomitant]
  5. GLIPIZIDE [Concomitant]

REACTIONS (1)
  - BLOOD GLUCOSE INCREASED [None]
